FAERS Safety Report 17559930 (Version 1)
Quarter: 2020Q1

REPORT INFORMATION
  Report Type: Report from Study
  Country: None (occurrence: CA)
  Receive Date: 20200319
  Receipt Date: 20200319
  Transmission Date: 20200409
  Serious: Yes (Other)
  Sender: FDA-Public Use
  Company Number: CA-ABBVIE-20K-028-3327443-00

PATIENT
  Age: 17 Year
  Sex: Male

DRUGS (2)
  1. HUMIRA [Suspect]
     Active Substance: ADALIMUMAB
     Route: 058
  2. HUMIRA [Suspect]
     Active Substance: ADALIMUMAB
     Indication: CROHN^S DISEASE
     Route: 058
     Dates: start: 20190527

REACTIONS (7)
  - Drug level abnormal [Unknown]
  - Crohn^s disease [Not Recovered/Not Resolved]
  - Anal fistula [Not Recovered/Not Resolved]
  - Pyrexia [Unknown]
  - Rectal discharge [Unknown]
  - Abscess [Not Recovered/Not Resolved]
  - Proctalgia [Unknown]

NARRATIVE: CASE EVENT DATE: 201910
